FAERS Safety Report 6044116-5 (Version None)
Quarter: 2009Q1

REPORT INFORMATION
  Report Type: 
  Country: None (occurrence: None)
  Receive Date: 20090120
  Receipt Date: 20090115
  Transmission Date: 20090719
  Serious: Yes (Death)
  Sender: FDA-Public Use
  Company Number: US-BRISTOL-MYERS SQUIBB COMPANY-14472815

PATIENT
  Age: 47 Year
  Sex: Male

DRUGS (5)
  1. WARFARIN SODIUM [Suspect]
     Route: 048
  2. GLYCOSIDE [Suspect]
     Route: 048
  3. ATORVASTATIN [Suspect]
     Route: 048
  4. HYDROCHLOROTHIAZIDE [Suspect]
     Route: 048
  5. DILTIAZEM HCL [Suspect]

REACTIONS (1)
  - COMPLETED SUICIDE [None]
